FAERS Safety Report 9015209 (Version 1)
Quarter: 2013Q1

REPORT INFORMATION
  Report Type: Spontaneous
  Country: FR (occurrence: FR)
  Receive Date: 20130116
  Receipt Date: 20130116
  Transmission Date: 20140127
  Serious: Yes (Other)
  Sender: FDA-Public Use
  Company Number: FR-009507513-1301FRA003656

PATIENT
  Age: 51 Year
  Sex: Female

DRUGS (1)
  1. NOROXINE [Suspect]
     Indication: URINARY TRACT INFECTION
     Dosage: 400 MG, BID
     Route: 048
     Dates: start: 20121027, end: 20121031

REACTIONS (2)
  - Eyelids pruritus [Unknown]
  - Blepharitis [Unknown]
